FAERS Safety Report 7389242-3 (Version None)
Quarter: 2011Q2

REPORT INFORMATION
  Report Type: 
  Country: None (occurrence: None)
  Receive Date: 20110401
  Receipt Date: 20110310
  Transmission Date: 20111010
  Serious: Yes (Hospitalization)
  Sender: FDA-Public Use
  Company Number: IT-BAYER-2011-021030

PATIENT
  Sex: Female

DRUGS (1)
  1. NAPROXEN SODIUM [Suspect]
     Indication: ARTHRALGIA
     Dosage: UNK
     Route: 048
     Dates: start: 20110215, end: 20110215

REACTIONS (3)
  - RASH [None]
  - ERYTHEMA [None]
  - FACE OEDEMA [None]
